FAERS Safety Report 6177160-8 (Version None)
Quarter: 2009Q2

REPORT INFORMATION
  Report Type: 
  Country: None (occurrence: None)
  Receive Date: 20090504
  Receipt Date: 20090424
  Transmission Date: 20091009
  Serious: Yes (Hospitalization)
  Sender: FDA-Public Use
  Company Number: US-PFIZER INC-2008034545

PATIENT
  Sex: Male
  Weight: 67.13 kg

DRUGS (11)
  1. MARAVIROC [Suspect]
     Indication: HIV INFECTION
     Dosage: UNK
     Dates: start: 20051004, end: 20051212
  2. TMC-125 [Concomitant]
     Indication: HIV TEST POSITIVE
     Route: 048
     Dates: start: 20060921, end: 20080427
  3. TMC-125 [Concomitant]
     Route: 048
     Dates: start: 20080428
  4. TMC114 [Concomitant]
     Indication: HIV INFECTION
     Route: 048
     Dates: start: 20060921, end: 20080427
  5. TMC114 [Concomitant]
     Route: 048
     Dates: start: 20080428
  6. RITONAVIR [Concomitant]
     Indication: HIV INFECTION
     Dates: start: 20080428
  7. RITONAVIR [Concomitant]
     Route: 048
     Dates: start: 20060921, end: 20080427
  8. TENOFOVIR [Concomitant]
     Indication: HIV INFECTION
     Route: 048
     Dates: start: 20060406, end: 20080427
  9. TENOFOVIR [Concomitant]
     Route: 048
     Dates: start: 20080428
  10. COMBIVIR [Concomitant]
     Indication: HIV INFECTION
     Dosage: 2 TABS
     Route: 048
     Dates: start: 20060406, end: 20080427
  11. COMBIVIR [Concomitant]
     Dosage: 2 TABS
     Route: 048
     Dates: start: 20080428

REACTIONS (2)
  - CHEST PAIN [None]
  - MYOCARDIAL INFARCTION [None]
